FAERS Safety Report 17249239 (Version 2)
Quarter: 2020Q1

REPORT INFORMATION
  Report Type: Spontaneous
  Country: SE (occurrence: SE)
  Receive Date: 20200108
  Receipt Date: 20200121
  Transmission Date: 20200409
  Serious: Yes (Hospitalization)
  Sender: FDA-Public Use
  Company Number: SE-PFIZER INC-2020008326

PATIENT
  Age: 16 Year
  Sex: Female

DRUGS (2)
  1. LYRICA [Suspect]
     Active Substance: PREGABALIN
     Dosage: 2.25 G, UNK
     Route: 048
     Dates: start: 20190812, end: 20190812
  2. PROPAVAN [Suspect]
     Active Substance: PROPIOMAZINE
     Dosage: 1.25 G, UNK
     Route: 048
     Dates: start: 20190812, end: 20190812

REACTIONS (4)
  - Intentional overdose [Unknown]
  - Electrocardiogram QT prolonged [Not Recovered/Not Resolved]
  - Intentional self-injury [Unknown]
  - Consciousness fluctuating [Recovered/Resolved]

NARRATIVE: CASE EVENT DATE: 201908
